FAERS Safety Report 8552747-3 (Version None)
Quarter: 2012Q3

REPORT INFORMATION
  Report Type: 
  Country: None (occurrence: None)
  Receive Date: 20120731
  Receipt Date: 20110726
  Transmission Date: 20120928
  Serious: Yes (Other)
  Sender: FDA-Public Use
  Company Number: US-BAYER-201021201NA

PATIENT
  Age: 48 Year
  Sex: Female

DRUGS (19)
  1. YAZ [Suspect]
     Indication: CONTRACEPTION
     Route: 048
     Dates: start: 20070101, end: 20071201
  2. SUDAFED 12 HOUR [Concomitant]
  3. PRASTERONE [Concomitant]
     Indication: ADRENAL DISORDER
     Dosage: 15 MG, UNK
  4. FOLIC ACID [Concomitant]
  5. YASMIN [Suspect]
     Indication: CONTRACEPTION
     Route: 048
  6. CITRACAL [Concomitant]
  7. ALLEGRA [Concomitant]
  8. LIPITOR [Concomitant]
  9. WELLBUTRIN [Concomitant]
  10. DROSPIRENONE AND ETHINYL ESTRADIOL [Concomitant]
  11. HORMONES NOS [Concomitant]
  12. ESTROGEN NOS [Concomitant]
     Indication: MENOPAUSAL DISORDER
  13. THYROID TAB [Concomitant]
     Indication: HYPOTHYROIDISM
     Dosage: 5 MG, UNK
  14. CRESTOR [Concomitant]
     Indication: HYPERCHOLESTEROLAEMIA
     Dosage: 40 MG, UNK
  15. MOTRIN [Concomitant]
  16. ZETIA [Concomitant]
  17. TESTOSTERONE [Concomitant]
     Indication: MENOPAUSAL DISORDER
  18. CENTRUM [Concomitant]
  19. PROGESTERONE [Concomitant]
     Indication: MENOPAUSAL DISORDER

REACTIONS (2)
  - PAIN IN EXTREMITY [None]
  - THROMBOPHLEBITIS SUPERFICIAL [None]
